FAERS Safety Report 20639085 (Version 1)
Quarter: 2022Q1

REPORT INFORMATION
  Report Type: Spontaneous
  Country: JP (occurrence: JP)
  Receive Date: 20220326
  Receipt Date: 20220326
  Transmission Date: 20220424
  Serious: Yes (Death, Hospitalization)
  Sender: FDA-Public Use
  Company Number: JP-CHUGAI-2022010112

PATIENT
  Age: 65 Year
  Sex: Male

DRUGS (14)
  1. ACTEMRA [Suspect]
     Active Substance: TOCILIZUMAB
     Indication: COVID-19 pneumonia
     Dosage: 500 MILLIGRAM, QD MOST RECENT DOSE ON 22/FEB/2022
     Route: 041
     Dates: start: 20220222
  2. VEKLURY [Suspect]
     Active Substance: REMDESIVIR
     Indication: COVID-19
     Dosage: 200 MILLIGRAM, QD.
     Route: 041
     Dates: start: 20220221, end: 20220221
  3. VEKLURY [Suspect]
     Active Substance: REMDESIVIR
     Dosage: 100 MILLIGRAM, QD, MOST RECENT DOSE ON 25/FEB/2022
     Route: 041
     Dates: start: 20220222, end: 20220225
  4. SOLU-MEDROL [Suspect]
     Active Substance: METHYLPREDNISOLONE SODIUM SUCCINATE
     Indication: COVID-19
     Dosage: 1000 MILLIGRAM, QD
     Route: 041
     Dates: start: 20220221, end: 20220222
  5. SOLU-MEDROL [Suspect]
     Active Substance: METHYLPREDNISOLONE SODIUM SUCCINATE
     Dosage: 500 MILLIGRAM, QD
     Route: 041
     Dates: start: 20220223, end: 20220224
  6. SOLU-MEDROL [Suspect]
     Active Substance: METHYLPREDNISOLONE SODIUM SUCCINATE
     Dosage: 200 MILLIGRAM, QD MOST RECENT DOSE ADMINISTERED ON 25/FEB/2022.
     Route: 041
     Dates: start: 20220225
  7. DEXTROSE\POTASSIUM CHLORIDE\SODIUM CHLORIDE\SODIUM LACTATE [Concomitant]
     Active Substance: DEXTROSE\POTASSIUM CHLORIDE\SODIUM CHLORIDE\SODIUM LACTATE
     Dosage: 500 MILLILITER, QD
     Route: 041
     Dates: start: 20220221, end: 20220303
  8. ASPIRIN [Concomitant]
     Active Substance: ASPIRIN
     Dosage: 100 MILLIGRAM, QD, AFTER BREAKFAST
     Route: 048
     Dates: start: 20220221, end: 20220224
  9. LANSOPRAZOLE [Concomitant]
     Active Substance: LANSOPRAZOLE
     Dosage: 15 MILLIGRAM, QD, AFTER BREAKFAST
     Route: 048
     Dates: start: 20220221, end: 20220224
  10. BISOPROLOL FUMARATE [Concomitant]
     Active Substance: BISOPROLOL FUMARATE
     Dosage: 0.625 MILLIGRAM, BID, AFTER BREAKFAST AND DINNER
     Route: 048
     Dates: start: 20220221, end: 20220224
  11. CARBOCYSTEINE [Concomitant]
     Active Substance: CARBOCYSTEINE
     Dosage: 500 MILLIGRAM, BID, AFTER BREAKFAST AND DINNER
     Route: 048
     Dates: start: 20220221, end: 20220224
  12. MIYA-BM [Concomitant]
     Active Substance: CLOSTRIDIUM BUTYRICUM SPORES STRAIN M-55
     Dosage: 2 TAB, TID, AFTER EACH MEAL
     Route: 048
     Dates: start: 20220221, end: 20220224
  13. FOSRENOL [Concomitant]
     Active Substance: LANTHANUM CARBONATE
     Dosage: 500 MILLIGRAM, BID, AFTER BREAKFAST AND DINNER
     Route: 048
     Dates: start: 20220221, end: 20220224
  14. FERRIC HYDROXIDE [Concomitant]
     Active Substance: FERRIC HYDROXIDE
     Dosage: 500 MILLIGRAM, TID, RIGHT BEFORE EACH MEAL
     Route: 048
     Dates: start: 20220221, end: 20220224

REACTIONS (3)
  - Respiratory failure [Fatal]
  - Pulmonary congestion [Fatal]
  - Pancreatitis acute [Recovered/Resolved]

NARRATIVE: CASE EVENT DATE: 20220225
